FAERS Safety Report 19683911 (Version 2)
Quarter: 2021Q3

REPORT INFORMATION
  Report Type: Spontaneous
  Country: FR (occurrence: FR)
  Receive Date: 20210811
  Receipt Date: 20210818
  Transmission Date: 20211014
  Serious: Yes (Other)
  Sender: FDA-Public Use
  Company Number: FR-UCBSA-2021038063

PATIENT
  Age: 56 Year
  Sex: Female

DRUGS (19)
  1. LUTERAN [Suspect]
     Active Substance: CHLORMADINONE ACETATE
     Indication: MIGRAINE
     Dates: start: 20011105, end: 200211
  2. LUTERAN [Suspect]
     Active Substance: CHLORMADINONE ACETATE
     Dosage: UNK
     Dates: start: 2017, end: 2019
  3. ANDROCUR [Suspect]
     Active Substance: CYPROTERONE ACETATE
     Indication: HIRSUTISM
     Dosage: UNK
     Dates: start: 201105, end: 201506
  4. LUTENYL [Suspect]
     Active Substance: NOMEGESTROL ACETATE
     Indication: HAEMORRHAGE
     Dosage: UNK
     Dates: start: 2002, end: 2011
  5. LUTENYL [Suspect]
     Active Substance: NOMEGESTROL ACETATE
     Indication: MIGRAINE
  6. KEPPRA [Suspect]
     Active Substance: LEVETIRACETAM
     Indication: PRODUCT USED FOR UNKNOWN INDICATION
     Dosage: 500MG
  7. SINGULAIR [Suspect]
     Active Substance: MONTELUKAST SODIUM
     Indication: PRODUCT USED FOR UNKNOWN INDICATION
  8. ALMOGRAN [Suspect]
     Active Substance: ALMOTRIPTAN MALATE
     Indication: HEADACHE
     Dosage: UNK
  9. MEDROL [Suspect]
     Active Substance: METHYLPREDNISOLONE
     Indication: PRODUCT USED FOR UNKNOWN INDICATION
     Dosage: 4MG
  10. LAROXYL [Suspect]
     Active Substance: AMITRIPTYLINE HYDROCHLORIDE
     Indication: HEADACHE
     Dosage: UNK
  11. DIANE (CYPROTERONE ACETATE\ETHINYL ESTRADIOL) [Suspect]
     Active Substance: CYPROTERONE ACETATE\ETHINYL ESTRADIOL
     Indication: MIGRAINE
  12. LEXOMIL [Suspect]
     Active Substance: BROMAZEPAM
     Indication: PRODUCT USED FOR UNKNOWN INDICATION
     Dosage: UNK
  13. SEROPLEX [Suspect]
     Active Substance: ESCITALOPRAM OXALATE
     Indication: PRODUCT USED FOR UNKNOWN INDICATION
     Dosage: 15MG
  14. VENTOLINE [SALBUTAMOL] [Suspect]
     Active Substance: ALBUTEROL SULFATE
     Indication: PRODUCT USED FOR UNKNOWN INDICATION
     Dosage: UNK
  15. MIGPRIV [Suspect]
     Active Substance: ASPIRIN LYSINE\METOCLOPRAMIDE HYDROCHLORIDE
     Indication: HEADACHE
     Dosage: UNK
  16. DIANE (CYPROTERONE ACETATE\ETHINYL ESTRADIOL) [Suspect]
     Active Substance: CYPROTERONE ACETATE\ETHINYL ESTRADIOL
     Indication: HAEMORRHAGE
     Dosage: 35MG
     Dates: start: 1999, end: 2001
  17. VENLAFAXINE HYDROCHLORIDE. [Suspect]
     Active Substance: VENLAFAXINE HYDROCHLORIDE
     Indication: HEADACHE
     Dosage: UNK
  18. CHRONO?INDOCID [Suspect]
     Active Substance: INDOMETHACIN
     Indication: HEADACHE
  19. NOCERTONE [Suspect]
     Active Substance: OXETORONE
     Indication: HEADACHE
     Dosage: UNK

REACTIONS (25)
  - Exophthalmos [Recovered/Resolved]
  - Ligament sprain [Unknown]
  - Nausea [Unknown]
  - Asthenia [Unknown]
  - Pain [Unknown]
  - Gait disturbance [Unknown]
  - Headache [Unknown]
  - Pupils unequal [Unknown]
  - Condition aggravated [Unknown]
  - Amnesia [Unknown]
  - Paraesthesia [Unknown]
  - Somnolence [Unknown]
  - Coordination abnormal [Unknown]
  - Heterophoria [Recovered/Resolved]
  - Photophobia [Recovered/Resolved]
  - Dizziness [Unknown]
  - Hypoaesthesia eye [Recovered/Resolved]
  - Diplopia [Unknown]
  - Eye pain [Unknown]
  - Meningioma [Unknown]
  - Disability [Unknown]
  - Eyelid ptosis [Unknown]
  - Mydriasis [Unknown]
  - Visual impairment [Unknown]
  - Impaired quality of life [Unknown]

NARRATIVE: CASE EVENT DATE: 20150627
